FAERS Safety Report 8991091 (Version 1)
Quarter: 2012Q4

REPORT INFORMATION
  Report Type: Spontaneous
  Country: US (occurrence: None)
  Receive Date: 20121220
  Receipt Date: 20121220
  Transmission Date: 20130627
  Serious: Yes (Hospitalization)
  Sender: FDA-Public Use
  Company Number: 2012-507

PATIENT
  Age: 76 Year
  Sex: Male

DRUGS (4)
  1. PRIALT (ZICONOTIDE) INTRATHECAL INFUSION [Suspect]
     Dosage: unknow once/hour
     Route: 037
  2. PRIALT (ZICONOTIDE) INTRATHECAL INFUSION [Suspect]
     Dosage: unknow once/hour
     Route: 037
  3. FENTANYL (FENTANYL CITRATE) INJECTION [Suspect]
     Dosage: unknow once/hour
     Route: 037
  4. FENTANYL (FENTANYL CITRATE) INJECTION [Suspect]
     Dosage: unknow once/hour
     Route: 037

REACTIONS (5)
  - Anaphylactic shock [None]
  - Pruritus generalised [None]
  - Hypersensitivity [None]
  - Loss of consciousness [None]
  - Gait disturbance [None]
